FAERS Safety Report 5592983-1 (Version None)
Quarter: 2008Q1

REPORT INFORMATION
  Report Type: 
  Country: None (occurrence: None)
  Receive Date: 20080114
  Receipt Date: 20080114
  Transmission Date: 20080703
  Serious: Yes (Life-Threatening)
  Sender: FDA-Public Use
  Company Number: None

PATIENT
  Age: 19 Year
  Sex: Female
  Weight: 75 kg

DRUGS (2)
  1. BECONASE [Suspect]
     Indication: PROPHYLAXIS
     Dosage: 1 SPRAY INTO EACH NOSTRIL  ONCE PER DAY  NASAL (DURATION: USED ONCE)
     Route: 045
  2. BECONASE [Suspect]
     Indication: SEASONAL ALLERGY
     Dosage: 1 SPRAY INTO EACH NOSTRIL  ONCE PER DAY  NASAL (DURATION: USED ONCE)
     Route: 045

REACTIONS (8)
  - DYSPNOEA [None]
  - INFLUENZA LIKE ILLNESS [None]
  - LYMPHADENOPATHY [None]
  - NASAL CONGESTION [None]
  - PHARYNGEAL OEDEMA [None]
  - PHARYNGOLARYNGEAL PAIN [None]
  - SINUSITIS [None]
  - WHEEZING [None]
